FAERS Safety Report 8798334 (Version 6)
Quarter: 2013Q1

REPORT INFORMATION
  Report Type: Spontaneous
  Country: US (occurrence: US)
  Receive Date: 20120920
  Receipt Date: 20130312
  Transmission Date: 20140127
  Serious: Yes (Disabling, Other)
  Sender: FDA-Public Use
  Company Number: US-009507513-1201USA00341

PATIENT
  Sex: Female
  Weight: 72.56 kg

DRUGS (2)
  1. FOSAMAX [Suspect]
     Indication: OSTEOPOROSIS
     Route: 048
     Dates: end: 2010
  2. BONIVA [Suspect]
     Indication: OSTEOPOROSIS
     Dosage: 150 MG, QM
     Route: 048

REACTIONS (21)
  - Femur fracture [Not Recovered/Not Resolved]
  - Open reduction of fracture [Unknown]
  - Low turnover osteopathy [Not Recovered/Not Resolved]
  - Syncope [Unknown]
  - Fall [Unknown]
  - Tooth disorder [Unknown]
  - Hypertension [Not Recovered/Not Resolved]
  - Fall [Unknown]
  - Gynaecological examination abnormal [Unknown]
  - Urinary tract infection [Recovering/Resolving]
  - Breast calcifications [Unknown]
  - Aortic aneurysm [Unknown]
  - Spinal column stenosis [Unknown]
  - Blood cholesterol increased [Unknown]
  - Anxiety [Not Recovered/Not Resolved]
  - Depression [Unknown]
  - Constipation [Unknown]
  - Bursitis [Unknown]
  - Osteoarthritis [Unknown]
  - Compression fracture [Unknown]
  - Scoliosis [Unknown]
